FAERS Safety Report 4377046-5 (Version None)
Quarter: 2004Q2

REPORT INFORMATION
  Report Type: 
  Country: None (occurrence: None)
  Receive Date: 20040614
  Receipt Date: 20040227
  Transmission Date: 20050107
  Serious: Yes (Hospitalization)
  Sender: FDA-Public Use
  Company Number: FR-ROCHE-360286

PATIENT
  Age: 23 Year
  Sex: Female
  Weight: 40 kg

DRUGS (14)
  1. CELLCEPT [Suspect]
     Route: 048
     Dates: start: 20040115
  2. NEORECORMON [Suspect]
     Route: 058
     Dates: end: 20020615
  3. NEORECORMON [Suspect]
     Dosage: RESTARTED AFTER THE TRANSPLANT.
     Route: 058
     Dates: start: 20040115
  4. NEORECORMON [Suspect]
     Dosage: RECEIVED UNTIL THE TRANSPLANT.
     Route: 042
     Dates: start: 20020615, end: 20040113
  5. PROGRAF [Concomitant]
  6. CORTANCYL [Concomitant]
  7. SIMULECT [Concomitant]
  8. SOLU-MEDROL [Concomitant]
  9. TENORMIN [Concomitant]
  10. MOPRAL [Concomitant]
  11. BACTRIM [Concomitant]
  12. CYMEVAN [Concomitant]
  13. SPECIAFOLDINE [Concomitant]
  14. STEROGYL [Concomitant]

REACTIONS (5)
  - ANTINUCLEAR ANTIBODY POSITIVE [None]
  - APLASIA PURE RED CELL [None]
  - DYSMENORRHOEA [None]
  - MENORRHAGIA [None]
  - PARVOVIRUS B19 SEROLOGY POSITIVE [None]
